FAERS Safety Report 13952367 (Version 1)
Quarter: 2017Q3

REPORT INFORMATION
  Report Type: Spontaneous
  Country: US (occurrence: US)
  Receive Date: 20170911
  Receipt Date: 20170911
  Transmission Date: 20171128
  Serious: No
  Sender: FDA-Public Use
  Company Number: US-TEVA-720492ACC

PATIENT
  Sex: Female
  Weight: 60 kg

DRUGS (2)
  1. FENTANYL. [Suspect]
     Active Substance: FENTANYL
     Indication: ARTHRITIS
     Route: 065
     Dates: start: 201611, end: 20161212
  2. HYDROCODONE 5/325 [Suspect]
     Active Substance: HYDROCODONE
     Route: 065

REACTIONS (2)
  - Somnolence [Unknown]
  - Inappropriate schedule of drug administration [None]
